FAERS Safety Report 20877294 (Version 1)
Quarter: 2022Q2

REPORT INFORMATION
  Report Type: Spontaneous
  Country: CN (occurrence: CN)
  Receive Date: 20220526
  Receipt Date: 20220526
  Transmission Date: 20220721
  Serious: Yes (Other)
  Sender: FDA-Public Use
  Company Number: CN-JNJFOC-20220550970

PATIENT
  Age: 76 Year
  Sex: Male
  Weight: 57 kg

DRUGS (2)
  1. ERLEADA [Suspect]
     Active Substance: APALUTAMIDE
     Indication: Prostate cancer
     Dosage: LAST ADMINISTRATION ON 24-04-2022
     Route: 048
     Dates: start: 20220419
  2. ERLEADA [Suspect]
     Active Substance: APALUTAMIDE
     Indication: Benign prostatic hyperplasia

REACTIONS (1)
  - Pyrexia [Recovered/Resolved]

NARRATIVE: CASE EVENT DATE: 20220419
